FAERS Safety Report 8846922 (Version 1)
Quarter: 2012Q4

REPORT INFORMATION
  Report Type: Spontaneous
  Country: US (occurrence: None)
  Receive Date: 20121017
  Receipt Date: 20121017
  Transmission Date: 20130627
  Serious: Yes (Other)
  Sender: FDA-Public Use
  Company Number: None

PATIENT
  Age: 57 Year
  Sex: Female
  Weight: 99.79 kg

DRUGS (1)
  1. DEXILANT [Suspect]
     Indication: ESOPHAGEAL ACID REFLUX
     Dosage: 1 day po
     Route: 048
     Dates: start: 20120701, end: 20120901

REACTIONS (1)
  - Diarrhoea [None]
